FAERS Safety Report 19379643 (Version 3)
Quarter: 2021Q3

REPORT INFORMATION
  Report Type: Spontaneous
  Country: US (occurrence: US)
  Receive Date: 20210607
  Receipt Date: 20210925
  Transmission Date: 20211014
  Serious: Yes (Hospitalization, Other)
  Sender: FDA-Public Use
  Company Number: US-SA-2021SA186937

PATIENT
  Sex: Male

DRUGS (21)
  1. TRAZODONE [Concomitant]
     Active Substance: TRAZODONE HYDROCHLORIDE
  2. NIFEDIPINE. [Concomitant]
     Active Substance: NIFEDIPINE
  3. EPINEPHRINE. [Concomitant]
     Active Substance: EPINEPHRINE
  4. MEMANTINE. [Concomitant]
     Active Substance: MEMANTINE
  5. ARICEPT [Concomitant]
     Active Substance: DONEPEZIL HYDROCHLORIDE
     Dosage: UNK
  6. ASPIRINE [Concomitant]
     Active Substance: ASPIRIN
  7. NAMENDA [Concomitant]
     Active Substance: MEMANTINE HYDROCHLORIDE
  8. AMANTADINE. [Concomitant]
     Active Substance: AMANTADINE HYDROCHLORIDE
  9. LOSARTAN. [Concomitant]
     Active Substance: LOSARTAN
  10. HEPARIN [Concomitant]
     Active Substance: HEPARIN SODIUM
  11. AMPHETAMINE [Concomitant]
     Active Substance: AMPHETAMINE
     Dosage: UNK
  12. DONEPEZIL. [Concomitant]
     Active Substance: DONEPEZIL
  13. CELEBREX [Concomitant]
     Active Substance: CELECOXIB
  14. LIPITOR [Concomitant]
     Active Substance: ATORVASTATIN CALCIUM
  15. PRILOSEC [Concomitant]
     Active Substance: OMEPRAZOLE MAGNESIUM
  16. METFORMIN [Concomitant]
     Active Substance: METFORMIN HYDROCHLORIDE
     Dosage: UNK
  17. CYANOCOBALAMIN. [Concomitant]
     Active Substance: CYANOCOBALAMIN
  18. NORMAL SALINE [Concomitant]
     Active Substance: SODIUM CHLORIDE
  19. LEXAPRO [Concomitant]
     Active Substance: ESCITALOPRAM OXALATE
  20. FABRAZYME [Suspect]
     Active Substance: AGALSIDASE BETA
     Indication: FABRY^S DISEASE
     Dosage: 120 MG, QOW
     Route: 042
     Dates: start: 20191224
  21. STERILE WATER [Concomitant]
     Active Substance: WATER

REACTIONS (4)
  - Hypoaesthesia [Recovered/Resolved]
  - Paraesthesia [Unknown]
  - Cholecystectomy [Unknown]
  - Hepatic failure [Unknown]
